FAERS Safety Report 11205976 (Version 3)
Quarter: 2016Q4

REPORT INFORMATION
  Report Type: Report from Study
  Country: KR (occurrence: KR)
  Receive Date: 20150622
  Receipt Date: 20161019
  Transmission Date: 20170206
  Serious: Yes (Disabling)
  Sender: FDA-Public Use
  Company Number: KR-OTSUKA-JP-2014-11603

PATIENT
  Age: 73 Year
  Sex: Male

DRUGS (14)
  1. TETRACOSACTRIN [Concomitant]
     Indication: ADRENAL INSUFFICIENCY
     Dosage: 250 ?G, QD
     Route: 042
     Dates: start: 20140207, end: 20140207
  2. POTASSIUM CHLORIDE. [Concomitant]
     Active Substance: POTASSIUM CHLORIDE
     Indication: HYPOKALAEMIA
     Dosage: 1800 MG, QD
     Route: 048
     Dates: start: 20140210, end: 20140213
  3. LEVOCLOPERASTINE FENDIZOATE [Concomitant]
     Active Substance: LEVOCLOPERASTINE FENDIZOATE
     Indication: COUGH
     Dosage: 24 ML, QD
     Route: 048
     Dates: start: 20140215
  4. METOCLOPRAMIDE. [Concomitant]
     Active Substance: METOCLOPRAMIDE
     Indication: PROPHYLAXIS OF NAUSEA AND VOMITING
     Dosage: 10/2 MG/ML, QD
     Route: 042
     Dates: start: 20140207, end: 20140207
  5. SODIUM CHLORIDE. [Concomitant]
     Active Substance: SODIUM CHLORIDE
     Indication: SUPPLEMENTATION THERAPY
     Dosage: 15 G, QD
     Route: 042
     Dates: start: 20140210, end: 20140213
  6. TOLVAPTAN [Suspect]
     Active Substance: TOLVAPTAN
     Indication: HYPONATRAEMIA
     Dosage: 15 MG, QD
     Route: 048
     Dates: start: 20140217, end: 20140219
  7. LACTULOSE CONE [Concomitant]
     Indication: CONSTIPATION
     Dosage: 15 ML, QD
     Route: 048
     Dates: start: 20140209, end: 20140213
  8. SILODOSIN [Concomitant]
     Active Substance: SILODOSIN
     Indication: BENIGN PROSTATIC HYPERPLASIA
     Dosage: 4 MG, QD
     Route: 048
     Dates: start: 20140210
  9. GINKGO BILOBA [Concomitant]
     Active Substance: GINKGO
     Indication: MALNUTRITION
  10. COZAAR [Concomitant]
     Active Substance: LOSARTAN POTASSIUM
     Indication: HYPERTENSION
     Dosage: 1 DF, QD
     Route: 048
     Dates: start: 20140209
  11. DIHYDROCODEINE TARATE [Concomitant]
     Indication: ANALGESIC THERAPY
     Dosage: 60 MG, QD
     Route: 048
     Dates: start: 20140218, end: 20140218
  12. DIAZEPAM. [Concomitant]
     Active Substance: DIAZEPAM
     Indication: ANXIETY
     Dosage: 10/2 MG/ML, QD
     Route: 042
     Dates: start: 20140207, end: 20140207
  13. GINKGO BILOBA [Concomitant]
     Active Substance: GINKGO
     Indication: CEREBROVASCULAR ACCIDENT PROPHYLAXIS
     Dosage: 17.5 MG, QD
     Route: 042
     Dates: start: 20140207, end: 20140208
  14. FINASTERIDE. [Concomitant]
     Active Substance: FINASTERIDE
     Indication: BENIGN PROSTATIC HYPERPLASIA
     Dosage: 5 MG, QD
     Route: 048
     Dates: start: 20140210

REACTIONS (1)
  - Visual acuity reduced [Recovered/Resolved]

NARRATIVE: CASE EVENT DATE: 20140219
